FAERS Safety Report 5454343-3 (Version None)
Quarter: 2007Q3

REPORT INFORMATION
  Report Type: 
  Country: None (occurrence: None)
  Receive Date: 20070917
  Receipt Date: 20070228
  Transmission Date: 20080115
  Serious: Yes (Other)
  Sender: FDA-Public Use
  Company Number: US-ASTRAZENECA-2006UW11803

PATIENT
  Age: 657 Month
  Sex: Male
  Weight: 119.1 kg

DRUGS (4)
  1. SEROQUEL [Suspect]
     Indication: SLEEP DISORDER
     Route: 048
     Dates: start: 20020201
  2. ABLIFY [Concomitant]
     Dates: start: 20030101
  3. TRAZODONE HCL [Concomitant]
     Dates: start: 20040101
  4. MARIJUANA [Concomitant]
     Dates: start: 19800101

REACTIONS (3)
  - DIABETES MELLITUS [None]
  - TARDIVE DYSKINESIA [None]
  - WEIGHT INCREASED [None]
